FAERS Safety Report 17147853 (Version 1)
Quarter: 2019Q4

REPORT INFORMATION
  Report Type: Report from Study
  Country: US (occurrence: US)
  Receive Date: 20191212
  Receipt Date: 20191212
  Transmission Date: 20200122
  Serious: Yes (Other)
  Sender: FDA-Public Use
  Company Number: US-GLAXOSMITHKLINE-US2019TSO212701

PATIENT
  Age: 77 Year
  Sex: Female
  Weight: 57.6 kg

DRUGS (1)
  1. NIRAPARIB [Suspect]
     Active Substance: NIRAPARIB
     Indication: NEOPLASM MALIGNANT
     Dosage: 200 MG, QD
     Route: 048
     Dates: start: 20191115

REACTIONS (9)
  - Musculoskeletal pain [Recovering/Resolving]
  - Carbohydrate antigen 125 increased [Unknown]
  - Mouth injury [Not Recovered/Not Resolved]
  - Hospice care [Unknown]
  - Asthenia [Unknown]
  - Pain [Unknown]
  - Product use in unapproved indication [Unknown]
  - Depressed level of consciousness [Unknown]
  - Mouth haemorrhage [Unknown]

NARRATIVE: CASE EVENT DATE: 20191203
